FAERS Safety Report 7706695-9 (Version None)
Quarter: 2011Q3

REPORT INFORMATION
  Report Type: 
  Country: None (occurrence: None)
  Receive Date: 20110824
  Receipt Date: 20110817
  Transmission Date: 20111222
  Serious: Yes (Disabling, Other)
  Sender: FDA-Public Use
  Company Number: US-PFIZER INC-2011154624

PATIENT
  Sex: Male
  Weight: 117.46 kg

DRUGS (3)
  1. PREDNISONE [Concomitant]
     Indication: BRONCHIAL DISORDER
     Dosage: UNK
  2. VORICONAZOLE [Suspect]
     Indication: FUNGAL INFECTION
     Dosage: 200 MG, 2X/DAY
     Route: 048
     Dates: start: 20110703
  3. VORICONAZOLE [Suspect]
     Dosage: 200 MG, DAILY
     Route: 048
     Dates: start: 20110707, end: 20110708

REACTIONS (12)
  - BONE DISORDER [None]
  - LIP DRY [None]
  - PAIN IN EXTREMITY [None]
  - BLINDNESS [None]
  - HALLUCINATION [None]
  - INSOMNIA [None]
  - ARTHRALGIA [None]
  - ABASIA [None]
  - VISUAL IMPAIRMENT [None]
  - HYPERHIDROSIS [None]
  - LIP BLISTER [None]
  - HEADACHE [None]
